FAERS Safety Report 5034727-8 (Version None)
Quarter: 2006Q2

REPORT INFORMATION
  Report Type: 
  Country: None (occurrence: None)
  Receive Date: 20060621
  Receipt Date: 20060612
  Transmission Date: 20061013
  Serious: Yes (Hospitalization)
  Sender: FDA-Public Use
  Company Number: ENT 2006-0068

PATIENT
  Age: 76 Year
  Sex: Female

DRUGS (11)
  1. COMTESS (ENTACAPONE) [Suspect]
     Indication: PARKINSON'S DISEASE
     Dosage: SEE IMAGE
     Dates: start: 20051201
  2. COMTESS (ENTACAPONE) [Suspect]
     Indication: PARKINSON'S DISEASE
     Dosage: SEE IMAGE
     Dates: start: 20060501
  3. KARDOPAL (LEVODOPA, CARBIDOPA) [Concomitant]
  4. SINEMET DEPOT [Concomitant]
  5. ATACAND [Concomitant]
  6. THYROXIN [Concomitant]
  7. PULMICORT [Concomitant]
  8. SEREVENT [Concomitant]
  9. IMDUR DEPOT [Concomitant]
  10. METOPROLOL SUCCINATE [Concomitant]
  11. BRICANYL [Concomitant]

REACTIONS (15)
  - ANOREXIA [None]
  - ANTIGLIADIN ANTIBODY POSITIVE [None]
  - ASTHENIA [None]
  - ASTHMA [None]
  - BACTERIA STOOL IDENTIFIED [None]
  - CONFUSIONAL STATE [None]
  - CONVULSION [None]
  - DELUSION [None]
  - DIARRHOEA [None]
  - FATIGUE [None]
  - HYPOKALAEMIA [None]
  - INFLAMMATION [None]
  - ORTHOSTATIC HYPOTENSION [None]
  - URINARY TRACT INFECTION [None]
  - WEIGHT DECREASED [None]
